FAERS Safety Report 16780250 (Version 2)
Quarter: 2019Q4

REPORT INFORMATION
  Report Type: Spontaneous
  Country: US (occurrence: US)
  Receive Date: 20190906
  Receipt Date: 20191205
  Transmission Date: 20200122
  Serious: Yes (Other)
  Sender: FDA-Public Use
  Company Number: US-TAKEDA-2019TUS050990

PATIENT

DRUGS (11)
  1. PREVACID [Suspect]
     Active Substance: LANSOPRAZOLE
     Indication: GASTROOESOPHAGEAL REFLUX DISEASE
     Dosage: 30 MILLIGRAM, QD
     Route: 048
     Dates: start: 2004, end: 2009
  2. AMOXICILLIN. [Concomitant]
     Active Substance: AMOXICILLIN
  3. FUROSEMIDE. [Concomitant]
     Active Substance: FUROSEMIDE
  4. LISINOPRIL. [Concomitant]
     Active Substance: LISINOPRIL
  5. CELEBREX [Concomitant]
     Active Substance: CELECOXIB
  6. ATORVASTATIN [Concomitant]
     Active Substance: ATORVASTATIN
  7. LEVOFLOXACINE                      /01278901/ [Concomitant]
     Active Substance: LEVOFLOXACIN
  8. LANSOPRAZOLE. [Suspect]
     Active Substance: LANSOPRAZOLE
     Indication: GASTROOESOPHAGEAL REFLUX DISEASE
     Dosage: 30 MILLIGRAM, QD
     Route: 048
     Dates: start: 2009
  9. AZITHROMYCIN ANHYDROUS. [Concomitant]
     Active Substance: AZITHROMYCIN ANHYDROUS
  10. DOXYCYCLINE. [Concomitant]
     Active Substance: DOXYCYCLINE
  11. TRAMADOL. [Concomitant]
     Active Substance: TRAMADOL

REACTIONS (3)
  - Renal failure [Unknown]
  - Chronic kidney disease [Not Recovered/Not Resolved]
  - Hyperchlorhydria [Unknown]

NARRATIVE: CASE EVENT DATE: 2012
